FAERS Safety Report 4374175-7 (Version None)
Quarter: 2004Q2

REPORT INFORMATION
  Report Type: 
  Country: None (occurrence: None)
  Receive Date: 20040604
  Receipt Date: 20040525
  Transmission Date: 20050107
  Serious: Yes (Other)
  Sender: FDA-Public Use
  Company Number: NSADSS2003007682

PATIENT
  Age: 41 Year
  Sex: Female
  Weight: 72.5755 kg

DRUGS (3)
  1. ORTHO EVRA [Suspect]
     Indication: CONTRACEPTION
     Dosage: 1, 3 IN 4 WEEK, TRANSDERMAL
     Route: 062
  2. IMITREX [Concomitant]
  3. ZITHROMAX [Concomitant]

REACTIONS (8)
  - DRUG EXPOSURE DURING PREGNANCY [None]
  - DRUG INEFFECTIVE [None]
  - INDUCED LABOUR [None]
  - MIGRAINE [None]
  - PREGNANCY ON ORAL CONTRACEPTIVE [None]
  - PREMATURE SEPARATION OF PLACENTA [None]
  - SINUSITIS [None]
  - VAGINAL HAEMORRHAGE [None]
